FAERS Safety Report 12673688 (Version 2)
Quarter: 2016Q3

REPORT INFORMATION
  Report Type: Spontaneous
  Country: US (occurrence: US)
  Receive Date: 20160822
  Receipt Date: 20160909
  Transmission Date: 20161109
  Serious: Yes (Death, Other)
  Sender: FDA-Public Use
  Company Number: US-ABBVIE-16K-163-1705150-00

PATIENT
  Sex: Female

DRUGS (1)
  1. HUMIRA [Suspect]
     Active Substance: ADALIMUMAB
     Indication: PSORIASIS
     Route: 058

REACTIONS (6)
  - Muscular weakness [Unknown]
  - Renal failure [Unknown]
  - Intestinal perforation [Unknown]
  - Sepsis [Fatal]
  - Contraindicated product administered [Unknown]
  - Liver disorder [Unknown]
